FAERS Safety Report 23364050 (Version 1)
Quarter: 2024Q1

REPORT INFORMATION
  Report Type: Report from Study
  Country: US (occurrence: None)
  Receive Date: 20240104
  Receipt Date: 20240104
  Transmission Date: 20240410
  Serious: Yes (Hospitalization)
  Sender: FDA-Public Use
  Company Number: 2024A000254

PATIENT
  Sex: Female

DRUGS (21)
  1. TAGRISSO [Suspect]
     Active Substance: OSIMERTINIB
     Indication: Non-small cell lung cancer stage IV
     Route: 048
     Dates: start: 20221107
  2. DOXYCYCLINE [Concomitant]
     Active Substance: DOXYCYCLINE
  3. ADVIL [Concomitant]
     Active Substance: IBUPROFEN
  4. ALBUTEROL [Concomitant]
     Active Substance: ALBUTEROL
  5. ALPRAZOLAM [Concomitant]
     Active Substance: ALPRAZOLAM
  6. CELEXA [Concomitant]
     Active Substance: CITALOPRAM HYDROBROMIDE
  7. FARXIGA [Concomitant]
     Active Substance: DAPAGLIFLOZIN PROPANEDIOL
  8. MUCINEX [Concomitant]
     Active Substance: GUAIFENESIN
  9. MIRAPEX [Concomitant]
     Active Substance: PRAMIPEXOLE DIHYDROCHLORIDE
  10. FLUCONAZOLE [Concomitant]
     Active Substance: FLUCONAZOLE
  11. FOLIC ACID [Concomitant]
     Active Substance: FOLIC ACID
  12. KLONOPIN [Concomitant]
     Active Substance: CLONAZEPAM
  13. LOMOTIL [Concomitant]
     Active Substance: ATROPINE SULFATE\DIPHENOXYLATE HYDROCHLORIDE
  14. METFORMIN [Concomitant]
     Active Substance: METFORMIN HYDROCHLORIDE
  15. NEURONTIN [Concomitant]
     Active Substance: GABAPENTIN
  16. NORCO [Concomitant]
     Active Substance: ACETAMINOPHEN\HYDROCODONE BITARTRATE
  17. ONDANSETRON [Concomitant]
     Active Substance: ONDANSETRON
  18. PROAIR HFA [Concomitant]
     Active Substance: ALBUTEROL SULFATE
  19. PROMETHAZINE [Concomitant]
     Active Substance: PROMETHAZINE HYDROCHLORIDE
  20. TYLENOL [Concomitant]
     Active Substance: ACETAMINOPHEN
  21. VALSARTAN [Concomitant]
     Active Substance: VALSARTAN

REACTIONS (2)
  - Localised infection [Recovered/Resolved]
  - Influenza [Recovered/Resolved]
